FAERS Safety Report 5933913-X (Version None)
Quarter: 2008Q4

REPORT INFORMATION
  Report Type: 
  Country: None (occurrence: None)
  Receive Date: 20081029
  Receipt Date: 20081017
  Transmission Date: 20090506
  Serious: Yes (Hospitalization)
  Sender: FDA-Public Use
  Company Number: SG-ROCHE-592444

PATIENT
  Age: 57 Year
  Sex: Male

DRUGS (2)
  1. CAPECITABINE [Suspect]
     Indication: RECTAL CANCER METASTATIC
     Dosage: RECEIVED ON DAYS 1-14, 3 WEEK CYCLE
     Route: 065
     Dates: start: 20070209
  2. OXALIPLATIN [Concomitant]
     Indication: RECTAL CANCER METASTATIC
     Dosage: RECEIVED ON DAY 1, 3 WEEK CYCLE
     Dates: start: 20070209

REACTIONS (3)
  - ANOREXIA [None]
  - FATIGUE [None]
  - OROMANDIBULAR DYSTONIA [None]
